FAERS Safety Report 6379234-5 (Version None)
Quarter: 2009Q3

REPORT INFORMATION
  Report Type: 
  Country: None (occurrence: None)
  Receive Date: 20090923
  Receipt Date: 20090923
  Transmission Date: 20100115
  Serious: No
  Sender: FDA-Public Use
  Company Number: None

PATIENT
  Sex: Male

DRUGS (1)
  1. LISINOPRIL [Suspect]
     Dosage: 10MG QD PO
     Route: 048
     Dates: start: 20090831, end: 20090904

REACTIONS (2)
  - LIP SWELLING [None]
  - SWELLING FACE [None]
